FAERS Safety Report 5515686-8 (Version None)
Quarter: 2007Q4

REPORT INFORMATION
  Report Type: 
  Country: None (occurrence: None)
  Receive Date: 20071113
  Receipt Date: 20070925
  Transmission Date: 20080405
  Serious: No
  Sender: FDA-Public Use
  Company Number: A0676074A

PATIENT
  Age: 47 Year
  Sex: Female

DRUGS (2)
  1. COREG [Suspect]
     Dosage: 6.25MG TWICE PER DAY
     Route: 048
     Dates: start: 20041001
  2. NO CONCURRENT MEDICATION [Concomitant]

REACTIONS (5)
  - ASTHENIA [None]
  - DRUG INEFFECTIVE [None]
  - FATIGUE [None]
  - PALLOR [None]
  - PHARMACEUTICAL PRODUCT COMPLAINT [None]
